FAERS Safety Report 26068091 (Version 1)
Quarter: 2025Q4

REPORT INFORMATION
  Report Type: Spontaneous
  Country: GB (occurrence: GB)
  Receive Date: 20251120
  Receipt Date: 20251120
  Transmission Date: 20260118
  Serious: Yes (Disabling)
  Sender: AUROBINDO
  Company Number: GB-MHRA-TPP11741928C11447605YC1762520956362

PATIENT
  Age: 67 Year
  Sex: Female
  Weight: 84 kg

DRUGS (9)
  1. AMOXICILLIN\CLAVULANIC ACID [Suspect]
     Active Substance: AMOXICILLIN\CLAVULANIC ACID
     Indication: Product used for unknown indication
     Dosage: UNK
     Route: 065
  2. INDAPAMIDE [Concomitant]
     Active Substance: INDAPAMIDE
     Indication: Ill-defined disorder
     Dosage: 1 DOSAGE FORM, EVERY MORNING
     Route: 065
  3. VALPROATE SODIUM [Concomitant]
     Active Substance: VALPROATE SODIUM
     Indication: Ill-defined disorder
     Dosage: 1 DOSAGE FORM, 3 TIMES A DAY
     Route: 065
     Dates: start: 20240405
  4. AMLODIPINE [Concomitant]
     Active Substance: AMLODIPINE BESYLATE
     Indication: Ill-defined disorder
     Dosage: 1 DOSAGE FORM, DAILY
     Route: 065
  5. ATORVASTATIN [Concomitant]
     Active Substance: ATORVASTATIN
     Indication: Ill-defined disorder
     Dosage: 1 DOSAGE FORM, DAILY
     Route: 065
  6. GABAPENTIN [Concomitant]
     Active Substance: GABAPENTIN
     Indication: Ill-defined disorder
     Dosage: 2 DOSAGE FORM, FOUR TIMES/DAY
     Route: 065
     Dates: start: 20250407
  7. IMIPRAMINE [Concomitant]
     Active Substance: IMIPRAMINE
     Indication: Ill-defined disorder
     Dosage: 1 DOSAGE FORM, AT BED TIME
     Route: 065
  8. LEVOTHYROXINE [Concomitant]
     Active Substance: LEVOTHYROXINE
     Indication: Ill-defined disorder
     Dosage: 1 DOSAGE FORM, EVERY MORNING
     Route: 065
  9. SERTRALINE [Concomitant]
     Active Substance: SERTRALINE HYDROCHLORIDE
     Indication: Ill-defined disorder
     Dosage: 3 DOSAGE FORM, DAILY
     Route: 065

REACTIONS (3)
  - Malaise [Unknown]
  - Nausea [Unknown]
  - Vomiting [Recovered/Resolved]
